FAERS Safety Report 5870901-6 (Version None)
Quarter: 2008Q3

REPORT INFORMATION
  Report Type: 
  Country: None (occurrence: None)
  Receive Date: 20080829
  Receipt Date: 20080822
  Transmission Date: 20090109
  Serious: Yes (Hospitalization, Other)
  Sender: FDA-Public Use
  Company Number: 2006-07-2064

PATIENT
  Age: 42 Year
  Sex: Female
  Weight: 87.9978 kg

DRUGS (10)
  1. PEG-INTRON [Suspect]
     Indication: HEPATITIS C
     Dosage: ; SC, ; SC
     Route: 058
     Dates: start: 20060530, end: 20061115
  2. PEG-INTRON [Suspect]
     Indication: HEPATITIS C
     Dosage: ; SC, ; SC
     Route: 058
     Dates: start: 20080822
  3. REBETOL [Suspect]
     Indication: HEPATITIS C
     Dosage: ; PO, ; PO
     Route: 048
     Dates: start: 20060530, end: 20061115
  4. REBETOL [Suspect]
     Indication: HEPATITIS C
     Dosage: ; PO, ; PO
     Route: 048
     Dates: start: 20080822
  5. LITHIUM CARBONATE [Suspect]
     Indication: BIPOLAR DISORDER
     Dosage: 300 MG; ; PO
     Route: 048
  6. METHADONE HCL [Concomitant]
  7. PRILOSEC [Concomitant]
  8. SEROQUEL [Concomitant]
  9. WELLBUTRIN SR [Concomitant]
  10. PREVACID [Concomitant]

REACTIONS (28)
  - ALOPECIA [None]
  - ANXIETY [None]
  - CONDITION AGGRAVATED [None]
  - CONFUSIONAL STATE [None]
  - DEBRIDEMENT [None]
  - DEHYDRATION [None]
  - DEPRESSION [None]
  - DYSGEUSIA [None]
  - DYSPNOEA [None]
  - FATIGUE [None]
  - FEELING ABNORMAL [None]
  - GASTROINTESTINAL HAEMORRHAGE [None]
  - HAEMATEMESIS [None]
  - HAEMOGLOBIN DECREASED [None]
  - HEPATITIS C VIRUS TEST [None]
  - INSOMNIA [None]
  - LOCALISED INFECTION [None]
  - MALAISE [None]
  - MELAENA [None]
  - MEMORY IMPAIRMENT [None]
  - PANIC ATTACK [None]
  - PLATELET COUNT DECREASED [None]
  - PULMONARY EMBOLISM [None]
  - STAPHYLOCOCCAL INFECTION [None]
  - STRESS [None]
  - ULCER [None]
  - VOMITING [None]
  - WEIGHT DECREASED [None]
